FAERS Safety Report 9079012 (Version 1)
Quarter: 2013Q1

REPORT INFORMATION
  Report Type: Spontaneous
  Country: NL (occurrence: NL)
  Receive Date: 20130130
  Receipt Date: 20130130
  Transmission Date: 20140127
  Serious: Yes (Hospitalization)
  Sender: FDA-Public Use
  Company Number: NL-009507513-1301NLD012590

PATIENT
  Age: 68 Year
  Sex: Male

DRUGS (4)
  1. TRYPTIZOL [Suspect]
     Indication: DEPRESSION
     Dosage: 50 MG, TID
     Route: 048
     Dates: start: 2006
  2. CRESTOR [Interacting]
     Indication: HYPERCHOLESTEROLAEMIA
     Dosage: 5 MG, QD
     Route: 048
     Dates: start: 201211, end: 20121224
  3. TRAMADOL HYDROCHLORIDE [Interacting]
     Indication: PAIN IN EXTREMITY
     Dosage: 50 MG, TID
     Route: 048
     Dates: start: 201212, end: 20121224
  4. GEMFIBROZIL [Interacting]
     Indication: HYPERCHOLESTEROLAEMIA
     Dosage: 600 MG, TID
     Route: 048
     Dates: start: 2011, end: 20121224

REACTIONS (4)
  - Confusional state [Recovered/Resolved]
  - Rhabdomyolysis [Recovered/Resolved with Sequelae]
  - Urinary retention [Recovered/Resolved]
  - Drug interaction [Recovered/Resolved with Sequelae]
